FAERS Safety Report 7927362-2 (Version None)
Quarter: 2011Q4

REPORT INFORMATION
  Report Type: 
  Country: None (occurrence: None)
  Receive Date: 20111118
  Receipt Date: 20111114
  Transmission Date: 20120403
  Serious: Yes (Other)
  Sender: FDA-Public Use
  Company Number: PHHY2010CA34660

PATIENT
  Sex: Female

DRUGS (1)
  1. ZOLEDRONOC ACID [Suspect]
     Indication: OSTEOPOROSIS
     Dosage: UNK UKN, UNK
     Route: 042
     Dates: start: 20090109

REACTIONS (8)
  - DEPRESSION [None]
  - WEIGHT DECREASED [None]
  - EATING DISORDER [None]
  - BACTERIAL INFECTION [None]
  - ABDOMINAL DISTENSION [None]
  - INSOMNIA [None]
  - PAIN [None]
  - ABDOMINAL PAIN UPPER [None]
